FAERS Safety Report 8073312-0 (Version None)
Quarter: 2011Q4

REPORT INFORMATION
  Report Type: 
  Country: None (occurrence: None)
  Receive Date: 20111221
  Receipt Date: 20101217
  Transmission Date: 20120403
  Serious: Yes (Other)
  Sender: FDA-Public Use
  Company Number: PHHY200703611US

PATIENT
  Sex: Male

DRUGS (1)
  1. EXJADE [Suspect]
     Dosage: 250 MG, ORAL
     Route: 048

REACTIONS (3)
  - LIVER DISORDER [None]
  - LIVER TRANSPLANT [None]
  - MALAISE [None]
